FAERS Safety Report 4582910-8 (Version None)
Quarter: 2005Q1

REPORT INFORMATION
  Report Type: 
  Country: None (occurrence: None)
  Receive Date: 20050215
  Receipt Date: 20050127
  Transmission Date: 20050727
  Serious: Yes (Other)
  Sender: FDA-Public Use
  Company Number: JP-BRISTOL-MYERS SQUIBB COMPANY-12859062

PATIENT
  Age: 48 Year
  Sex: Male

DRUGS (6)
  1. IFOMIDE [Suspect]
     Indication: SYNOVIAL SARCOMA
     Dosage: START DATE:  07-JAN-2002.  DURATION:  5 DAYS
     Route: 041
     Dates: start: 20020107, end: 20020111
  2. IFOMIDE [Suspect]
     Indication: METASTASES TO LUNG
     Dosage: START DATE:  07-JAN-2002.  DURATION:  5 DAYS
     Route: 041
     Dates: start: 20020107, end: 20020111
  3. PARAPLATIN [Suspect]
     Indication: SYNOVIAL SARCOMA
     Route: 041
     Dates: start: 20020311, end: 20020314
  4. PARAPLATIN [Suspect]
     Indication: METASTASES TO LUNG
     Route: 041
     Dates: start: 20020311, end: 20020314
  5. VEPESID [Suspect]
     Indication: SYNOVIAL SARCOMA
     Route: 041
     Dates: start: 20020311, end: 20020314
  6. VEPESID [Suspect]
     Indication: METASTASES TO LUNG
     Route: 041
     Dates: start: 20020311, end: 20020314

REACTIONS (1)
  - ENCEPHALOPATHY [None]
